FAERS Safety Report 13845274 (Version 1)
Quarter: 2017Q3

REPORT INFORMATION
  Report Type: Spontaneous
  Country: FR (occurrence: FR)
  Receive Date: 20170808
  Receipt Date: 20170808
  Transmission Date: 20171127
  Serious: Yes (Hospitalization, Other)
  Sender: FDA-Public Use
  Company Number: FR-PFIZER INC-2017337882

PATIENT
  Age: 52 Year
  Sex: Male

DRUGS (12)
  1. BRILIQUE [Concomitant]
     Active Substance: TICAGRELOR
     Dosage: 90 UNK, 2X/DAY
  2. PERINDOPRIL [Concomitant]
     Active Substance: PERINDOPRIL
     Dosage: 2 MG, 1X/DAY IN THE MORNING
  3. VITAMIN B6 [Concomitant]
     Active Substance: PYRIDOXINE HYDROCHLORIDE
     Dosage: 500 MG, 1X/DAY
  4. TAHOR [Suspect]
     Active Substance: ATORVASTATIN CALCIUM
     Dosage: 80, UNK
     Dates: end: 20170714
  5. VITAMIN B1 [Concomitant]
     Active Substance: THIAMINE HYDROCHLORIDE
     Dosage: 1 G, 1X/DAY
  6. KEPPRA [Concomitant]
     Active Substance: LEVETIRACETAM
     Indication: EPILEPSY
     Dosage: 500 UNK, 2X/DAY
  7. LOVENOX [Concomitant]
     Active Substance: ENOXAPARIN SODIUM
     Dosage: 0.4 UNK
  8. KARDEGIC [Concomitant]
     Active Substance: ASPIRIN LYSINE
     Dosage: 75 MG, 1X/DAY
  9. BISOCE [Concomitant]
     Active Substance: BISOPROLOL
     Dosage: 1.25 MG, 1X/DAY
  10. ATARAX [Concomitant]
     Active Substance: HYDROXYZINE HYDROCHLORIDE
     Dosage: 25 UNK, 4X/DAY
  11. DIHYDAN [Concomitant]
     Active Substance: PHENYTOIN
     Indication: EPILEPSY
     Dosage: 100 UNK, 3X/DAY
  12. LANZOR [Concomitant]
     Active Substance: LANSOPRAZOLE
     Dosage: 15 MG, 1X/DAY

REACTIONS (5)
  - Rhabdomyolysis [Unknown]
  - Acute kidney injury [Unknown]
  - Hepatocellular injury [Unknown]
  - Body temperature increased [Recovering/Resolving]
  - Generalised tonic-clonic seizure [Recovered/Resolved]

NARRATIVE: CASE EVENT DATE: 20170711
